FAERS Safety Report 10597197 (Version 3)
Quarter: 2014Q4

REPORT INFORMATION
  Report Type: Spontaneous
  Country: US (occurrence: US)
  Receive Date: 20141121
  Receipt Date: 20141226
  Transmission Date: 20150529
  Serious: Yes (Hospitalization, Disabling)
  Sender: FDA-Public Use
  Company Number: US-ROCHE-1467270

PATIENT
  Sex: Female

DRUGS (5)
  1. ALBUTEROL. [Concomitant]
     Active Substance: ALBUTEROL
     Indication: ASTHMA
     Dosage: RESCUE INHALER
     Route: 055
  2. HERCEPTIN [Suspect]
     Active Substance: TRASTUZUMAB
     Indication: HER-2 POSITIVE BREAST CANCER
     Dosage: AUG OR SEP 2012 START
     Route: 042
     Dates: start: 2012, end: 201401
  3. FASLODEX [Concomitant]
     Active Substance: FULVESTRANT
     Indication: HER-2 POSITIVE BREAST CANCER
     Dosage: RECIEVED 6 DOSES, 5CC PER BUTTOCK
     Route: 030
     Dates: start: 2013, end: 20130613
  4. MORPHINE [Concomitant]
     Active Substance: MORPHINE
     Route: 042
  5. NEURONTIN [Suspect]
     Active Substance: GABAPENTIN
     Indication: PRODUCT USED FOR UNKNOWN INDICATION
     Route: 065

REACTIONS (13)
  - Bradyphrenia [Not Recovered/Not Resolved]
  - Choking sensation [Unknown]
  - Lung disorder [Not Recovered/Not Resolved]
  - Speech disorder [Not Recovered/Not Resolved]
  - Neuropathy peripheral [Not Recovered/Not Resolved]
  - Interstitial lung disease [Unknown]
  - Dyspnoea [Not Recovered/Not Resolved]
  - Disease progression [Unknown]
  - Chest discomfort [Unknown]
  - Gait disturbance [Not Recovered/Not Resolved]
  - Tumour marker increased [Not Recovered/Not Resolved]
  - Nerve injury [Not Recovered/Not Resolved]
  - Chronic obstructive pulmonary disease [Unknown]

NARRATIVE: CASE EVENT DATE: 2013
